FAERS Safety Report 9225202 (Version 1)
Quarter: 2013Q2

REPORT INFORMATION
  Report Type: Spontaneous
  Country: US (occurrence: US)
  Receive Date: 20130411
  Receipt Date: 20130411
  Transmission Date: 20140414
  Serious: No
  Sender: FDA-Public Use
  Company Number: US-PFIZER INC-2013111819

PATIENT
  Age: 30 Year
  Sex: Female

DRUGS (2)
  1. FLAGYL [Suspect]
     Indication: VAGINITIS BACTERIAL
     Dosage: 500 MG, 2X/DAY
     Dates: start: 2012
  2. DOXYCYCLINE [Concomitant]
     Indication: ACNE
     Dosage: UNK

REACTIONS (1)
  - Loss of libido [Unknown]
